FAERS Safety Report 6709410-0 (Version None)
Quarter: 2010Q2

REPORT INFORMATION
  Report Type: 
  Country: None (occurrence: None)
  Receive Date: 20100504
  Receipt Date: 20100423
  Transmission Date: 20101027
  Serious: No
  Sender: FDA-Public Use
  Company Number: US-B.I. PHARMACEUTICALS,INC./RIDGEFIELD-2010-BP-04769BP

PATIENT
  Sex: Female

DRUGS (7)
  1. SPIRIVA [Suspect]
     Indication: EMPHYSEMA
     Dosage: 18 MCG
     Route: 055
     Dates: start: 20081001
  2. SPIRIVA [Suspect]
     Indication: BRONCHITIS
  3. SYNTHROID [Concomitant]
     Indication: HYPOTHYROIDISM
     Dosage: 1 MG
     Route: 048
  4. LOPRESSOR [Concomitant]
     Indication: HYPERTENSION
     Dosage: 50 MG
     Route: 048
  5. ALDACTAZIDE [Concomitant]
     Dosage: 25 MG
     Route: 048
  6. FOLIC ACID [Concomitant]
     Dosage: 1 MG
     Route: 048
  7. LIPITOR [Concomitant]
     Indication: BLOOD CHOLESTEROL INCREASED
     Dosage: 20 MG
     Route: 048

REACTIONS (2)
  - DENTAL CARIES [None]
  - DRY MOUTH [None]
